FAERS Safety Report 15256573 (Version 2)
Quarter: 2018Q4

REPORT INFORMATION
  Report Type: Report from Study
  Country: IT (occurrence: IT)
  Receive Date: 20180808
  Receipt Date: 20181009
  Transmission Date: 20190204
  Serious: Yes (Hospitalization)
  Sender: FDA-Public Use
  Company Number: IT-PFIZER INC-2018318063

PATIENT
  Age: 74 Year
  Sex: Male

DRUGS (5)
  1. DELTACORTENE [Concomitant]
     Active Substance: PREDNISONE
  2. SALAZOPYRIN EN [Suspect]
     Active Substance: SULFASALAZINE
     Indication: RHEUMATOID ARTHRITIS
     Dosage: 3 DF, 1X/DAY
     Route: 048
     Dates: start: 20180328, end: 20180429
  3. VALSARTAN DOC GENERICI [Concomitant]
  4. ZYLORIC [Concomitant]
     Active Substance: ALLOPURINOL
  5. METFORMINA DOC [Concomitant]

REACTIONS (3)
  - Pyrexia [Recovering/Resolving]
  - Dyspnoea [Recovering/Resolving]
  - Cough [Recovering/Resolving]

NARRATIVE: CASE EVENT DATE: 20180429
